FAERS Safety Report 4588035-X (Version None)
Quarter: 2005Q1

REPORT INFORMATION
  Report Type: 
  Country: None (occurrence: None)
  Receive Date: 20050221
  Receipt Date: 20050202
  Transmission Date: 20050727
  Serious: Yes (Life-Threatening, Hospitalization)
  Sender: FDA-Public Use
  Company Number: PHBS2005JP01811

PATIENT
  Age: 55 Year
  Sex: Male
  Weight: 42 kg

DRUGS (9)
  1. GRAMALIL [Suspect]
     Indication: HYPERKINESIA
     Dosage: 150 MG/D
     Route: 048
  2. GRAMALIL [Suspect]
     Dosage: 50 MG/D
     Route: 048
     Dates: start: 20050131
  3. LAXOBERON [Concomitant]
     Dosage: 5 MG/D
     Route: 048
  4. YODEL [Concomitant]
     Dosage: 160 MG/D
     Route: 048
  5. LAMISIL [Concomitant]
     Dosage: 125 MG/D
     Route: 048
  6. MELLERIL [Suspect]
     Indication: HYPERKINESIA
     Dosage: 175 MG/D
     Route: 048
  7. MELLERIL [Suspect]
     Dosage: 100 MG/D
     Route: 048
     Dates: start: 20050131
  8. AMOBAN [Concomitant]
     Dosage: 10 MG/D
     Route: 048
  9. MAGMITT KENEI [Suspect]
     Dosage: 1500 MG/D
     Route: 048

REACTIONS (6)
  - BLOOD PRESSURE SYSTOLIC DECREASED [None]
  - DECREASED ACTIVITY [None]
  - DIARRHOEA [None]
  - HEART RATE DECREASED [None]
  - HYPOTHERMIA [None]
  - SEDATION [None]
